FAERS Safety Report 25308136 (Version 3)
Quarter: 2025Q3

REPORT INFORMATION
  Report Type: Spontaneous
  Country: US (occurrence: US)
  Receive Date: 20250513
  Receipt Date: 20250703
  Transmission Date: 20251020
  Serious: Yes (Death, Hospitalization, Other)
  Sender: ARDELYX
  Company Number: US-ARDELYX-2025ARDX003269

PATIENT
  Age: 44 Year
  Sex: Female

DRUGS (2)
  1. XPHOZAH [Suspect]
     Active Substance: TENAPANOR HYDROCHLORIDE
     Indication: Chronic kidney disease
     Route: 048
     Dates: start: 20240810
  2. XPHOZAH [Suspect]
     Active Substance: TENAPANOR HYDROCHLORIDE
     Route: 065
     Dates: start: 20240810

REACTIONS (6)
  - Cardiac arrest [Fatal]
  - Septic shock [Fatal]
  - Diabetic gangrene [Fatal]
  - Diabetic foot infection [Unknown]
  - Foot amputation [Unknown]
  - Groin abscess [Unknown]

NARRATIVE: CASE EVENT DATE: 20241220
